FAERS Safety Report 24987646 (Version 2)
Quarter: 2025Q3

REPORT INFORMATION
  Report Type: Spontaneous
  Country: US (occurrence: US)
  Receive Date: 20250219
  Receipt Date: 20250919
  Transmission Date: 20251021
  Serious: Yes (Other)
  Sender: SANOFI AVENTIS
  Company Number: US-SA-2025SA049306

PATIENT
  Age: 45 Year
  Sex: Female

DRUGS (5)
  1. DUPIXENT [Suspect]
     Active Substance: DUPILUMAB
     Indication: Neurodermatitis
     Dates: start: 202405, end: 202405
  2. DUPIXENT [Suspect]
     Active Substance: DUPILUMAB
     Dosage: 300 MG, QOW
     Dates: end: 202501
  3. DUPIXENT [Suspect]
     Active Substance: DUPILUMAB
     Dates: start: 202505, end: 202505
  4. DUPIXENT [Suspect]
     Active Substance: DUPILUMAB
     Dosage: 300 MG QOW
     Dates: start: 202505
  5. BIMATOPROST [Suspect]
     Active Substance: BIMATOPROST
     Indication: Growth of eyelashes

REACTIONS (6)
  - Hypothyroidism [Unknown]
  - Madarosis [Unknown]
  - Vitamin B12 increased [Unknown]
  - Blood copper increased [Unknown]
  - Skin hypertrophy [Unknown]
  - Alopecia [Unknown]

NARRATIVE: CASE EVENT DATE: 20250101
